FAERS Safety Report 7247207-6 (Version None)
Quarter: 2011Q1

REPORT INFORMATION
  Report Type: 
  Country: None (occurrence: None)
  Receive Date: 20110127
  Receipt Date: 20110119
  Transmission Date: 20110831
  Serious: Yes (Death, Other)
  Sender: FDA-Public Use
  Company Number: DE-GENZYME-CAMP-1001293

PATIENT
  Age: 68 Year
  Sex: Female

DRUGS (13)
  1. CAMPATH [Suspect]
     Indication: ACUTE GRAFT VERSUS HOST DISEASE
     Dosage: 3 MG, UNK
     Route: 042
  2. FLUDARA [Suspect]
     Indication: STEM CELL TRANSPLANT
     Dosage: UNK
     Route: 065
  3. CORTICOSTEROIDS [Concomitant]
     Indication: ACUTE GRAFT VERSUS HOST DISEASE
     Dosage: } = 2MG/KG QD FOR }= 7 DAYS
  4. MYCOPHENOLATE MOFETIL [Concomitant]
     Indication: PROPHYLAXIS AGAINST GRAFT VERSUS HOST DISEASE
     Dosage: 30 MG/KG, QD
  5. ANTI-THYMOCYTE GLOBULIN NOS [Concomitant]
     Indication: PROPHYLAXIS AGAINST GRAFT VERSUS HOST DISEASE
  6. CAMPATH [Suspect]
     Dosage: UNK, QD X 2  Q 3-4 WEEKS
  7. CYCLOSPORINE [Concomitant]
     Indication: PROPHYLAXIS AGAINST GRAFT VERSUS HOST DISEASE
     Dosage: 3 MG/KG, QD STARTING DAY -1
  8. ACYCLOVIR [Concomitant]
     Indication: INFECTION PROPHYLAXIS
  9. CAMPATH [Suspect]
     Dosage: 30 MG, UNK, ON 4 OR 5 DAYS
     Route: 042
  10. BUSULFAN [Suspect]
     Indication: STEM CELL TRANSPLANT
     Dosage: UNK
  11. CAMPATH [Suspect]
     Dosage: 10 MG, UNK
     Route: 042
  12. TRIMETHOPRIM + SULFAMETHOXAZOLE [Concomitant]
     Indication: INFECTION PROPHYLAXIS
  13. FLUCONAZOLE [Concomitant]
     Indication: INFECTION PROPHYLAXIS

REACTIONS (3)
  - DEATH [None]
  - CYTOMEGALOVIRUS INFECTION [None]
  - PNEUMONIA [None]
